FAERS Safety Report 10217125 (Version 1)
Quarter: 2014Q2

REPORT INFORMATION
  Report Type: Spontaneous
  Country: US (occurrence: US)
  Receive Date: 20140604
  Receipt Date: 20140604
  Transmission Date: 20141212
  Serious: Yes (Death, Hospitalization)
  Sender: FDA-Public Use
  Company Number: US-ROXANE LABORATORIES, INC.-2014-RO-00843RO

PATIENT
  Age: 57 Year
  Sex: Male

DRUGS (1)
  1. MERCAPTOPURINE [Suspect]
     Indication: CROHN^S DISEASE
     Route: 065

REACTIONS (3)
  - Small intestine adenocarcinoma [Fatal]
  - Squamous cell carcinoma [Unknown]
  - Basal cell carcinoma [Unknown]
